FAERS Safety Report 11555473 (Version 1)
Quarter: 2015Q3

REPORT INFORMATION
  Report Type: Other
  Country: DE (occurrence: DE)
  Receive Date: 20150925
  Receipt Date: 20150925
  Transmission Date: 20151125
  Serious: Yes (Hospitalization)
  Sender: FDA-Public Use
  Company Number: DE-LINDE GAS NORTH AMERICA LLC-DE-LHC-2015122

PATIENT
  Sex: Male

DRUGS (1)
  1. CONOXIA [Suspect]
     Active Substance: OXYGEN
     Indication: PRODUCT USED FOR UNKNOWN INDICATION

REACTIONS (1)
  - Burns second degree [None]

NARRATIVE: CASE EVENT DATE: 20150911
